FAERS Safety Report 12493446 (Version 2)
Quarter: 2016Q2

REPORT INFORMATION
  Report Type: Report from Study
  Country: JP (occurrence: JP)
  Receive Date: 20160623
  Receipt Date: 20160628
  Transmission Date: 20160815
  Serious: Yes (Other)
  Sender: FDA-Public Use
  Company Number: JP-ABBVIE-16P-087-1655084-00

PATIENT
  Sex: Male

DRUGS (1)
  1. VIEKIRAX [Suspect]
     Active Substance: OMBITASVIR\PARITAPREVIR\RITONAVIR
     Indication: HEPATITIS C
     Route: 048
     Dates: start: 20160527

REACTIONS (4)
  - Dacryostenosis acquired [Unknown]
  - Lacrimation increased [Unknown]
  - Eye operation [Unknown]
  - Dizziness [Unknown]

NARRATIVE: CASE EVENT DATE: 2016
